FAERS Safety Report 8552318 (Version 2)
Quarter: 2014Q1

REPORT INFORMATION
  Report Type: Spontaneous
  Country: US (occurrence: US)
  Receive Date: 20120508
  Receipt Date: 20140324
  Transmission Date: 20141002
  Serious: Yes (Death, Other)
  Sender: FDA-Public Use
  Company Number: US-ACTELION-A-NJ2012-63319

PATIENT
  Age: 96 Year
  Sex: Female

DRUGS (2)
  1. TRACLEER [Suspect]
     Indication: PULMONARY ARTERIAL HYPERTENSION
     Dosage: UNK
     Route: 048
     Dates: start: 20120228, end: 20140306
  2. COUMADIN [Concomitant]

REACTIONS (7)
  - Disease progression [Fatal]
  - Mechanical ventilation [Recovered/Resolved]
  - Sleep disorder [Unknown]
  - Flushing [Unknown]
  - Headache [Unknown]
  - Respiratory rate increased [Unknown]
  - Nutritional supplementation [Recovered/Resolved]
